FAERS Safety Report 17455300 (Version 1)
Quarter: 2020Q1

REPORT INFORMATION
  Report Type: Spontaneous
  Country: US (occurrence: US)
  Receive Date: 20200212
  Receipt Date: 20200212
  Transmission Date: 20200409
  Serious: Yes (Other)
  Sender: FDA-Public Use
  Company Number: None

PATIENT
  Age: 53 Year
  Sex: Female
  Weight: 72.57 kg

DRUGS (1)
  1. OSELTAMIVIR PHOSPHATE. [Suspect]
     Active Substance: OSELTAMIVIR PHOSPHATE
     Indication: INFLUENZA
     Dates: start: 20191127

REACTIONS (10)
  - Fluid intake reduced [None]
  - Insomnia [None]
  - Headache [None]
  - Anxiety [None]
  - Sensory disturbance [None]
  - Agitation [None]
  - Hyperventilation [None]
  - Feeding disorder [None]
  - Fear [None]
  - Chest discomfort [None]

NARRATIVE: CASE EVENT DATE: 20191202
